FAERS Safety Report 7016064-5 (Version None)
Quarter: 2010Q3

REPORT INFORMATION
  Report Type: 
  Country: None (occurrence: None)
  Receive Date: 20100923
  Receipt Date: 20100915
  Transmission Date: 20110219
  Serious: Yes (Hospitalization)
  Sender: FDA-Public Use
  Company Number: 018784

PATIENT
  Sex: Female
  Weight: 67 kg

DRUGS (4)
  1. LACOSAMIDE [Suspect]
     Indication: EPILEPSY
     Dosage: (250 MG BID ORAL)
     Route: 048
  2. CLOBAZAM [Concomitant]
  3. LAMOTRIGINE [Concomitant]
  4. LEVETIRACETAM [Concomitant]

REACTIONS (5)
  - CHOKING SENSATION [None]
  - CONDITION AGGRAVATED [None]
  - DYSGEUSIA [None]
  - GRAND MAL CONVULSION [None]
  - PARAESTHESIA [None]
